FAERS Safety Report 13836506 (Version 2)
Quarter: 2017Q3

REPORT INFORMATION
  Report Type: Spontaneous
  Country: MX (occurrence: MX)
  Receive Date: 20170804
  Receipt Date: 20170822
  Transmission Date: 20171127
  Serious: Yes (Other)
  Sender: FDA-Public Use
  Company Number: MX-TAKEDA-2017TUS016332

PATIENT
  Age: 17 Year
  Sex: Male

DRUGS (1)
  1. DEXIVANT (DEXLANSOPRAZOLE) [Suspect]
     Active Substance: DEXLANSOPRAZOLE
     Indication: GASTRITIS
     Dosage: 60 MG, UNK
     Route: 048

REACTIONS (2)
  - Off label use [Unknown]
  - Purpura [Not Recovered/Not Resolved]
